FAERS Safety Report 25467770 (Version 2)
Quarter: 2025Q3

REPORT INFORMATION
  Report Type: Report from Study
  Country: US (occurrence: US)
  Receive Date: 20250623
  Receipt Date: 20250708
  Transmission Date: 20251020
  Serious: Yes (Other)
  Sender: GLAXOSMITHKLINE
  Company Number: US-GLAXOSMITHKLINE INC-US2025073304

PATIENT
  Sex: Female

DRUGS (2)
  1. BELIMUMAB [Suspect]
     Active Substance: BELIMUMAB
     Indication: Systemic lupus erythematosus
  2. PREDNISONE [Concomitant]
     Active Substance: PREDNISONE
     Indication: Product used for unknown indication

REACTIONS (12)
  - Systemic lupus erythematosus [Unknown]
  - Neck surgery [Unknown]
  - Knee arthroplasty [Unknown]
  - Full blood count decreased [Unknown]
  - Tooth loss [Unknown]
  - Urinary tract infection [Unknown]
  - Malaise [Unknown]
  - Spinal pain [Unknown]
  - Neck pain [Unknown]
  - Hypersensitivity [Unknown]
  - Arthritis [Unknown]
  - Product dose omission issue [Unknown]

NARRATIVE: CASE EVENT DATE: 20240101
